FAERS Safety Report 6067883-3 (Version None)
Quarter: 2009Q1

REPORT INFORMATION
  Report Type: 
  Country: None (occurrence: None)
  Receive Date: 20090203
  Receipt Date: 20090120
  Transmission Date: 20090719
  Serious: No
  Sender: FDA-Public Use
  Company Number: SPI200900020

PATIENT
  Age: 59 Year
  Sex: Female
  Weight: 94.8 kg

DRUGS (8)
  1. AMITIZA [Suspect]
     Indication: CONSTIPATION
     Dosage: 24 MCG, BID, ORAL
     Route: 048
     Dates: start: 20090117, end: 20090119
  2. ASPIRIN [Concomitant]
  3. FLUOXETINE [Concomitant]
  4. OMEPRAZOLE [Concomitant]
  5. COENZYME Q10 [Concomitant]
  6. METFORMIN HCL [Concomitant]
  7. BENICAR [Concomitant]
  8. IBUPROFEN TABLETS [Concomitant]

REACTIONS (6)
  - NAUSEA [None]
  - NON-CARDIAC CHEST PAIN [None]
  - OEDEMA [None]
  - OEDEMA PERIPHERAL [None]
  - PAIN [None]
  - RASH PRURITIC [None]
